FAERS Safety Report 4979036-8 (Version None)
Quarter: 2006Q2

REPORT INFORMATION
  Report Type: 
  Country: None (occurrence: None)
  Receive Date: 20060419
  Receipt Date: 20060419
  Transmission Date: 20061013
  Serious: Yes (Hospitalization)
  Sender: FDA-Public Use
  Company Number: None

PATIENT
  Sex: Female

DRUGS (14)
  1. CELECOXIB [Suspect]
     Indication: PANCREATIC CARCINOMA
     Dosage: 200 MG BID PO
     Route: 048
     Dates: start: 20060327, end: 20060417
  2. IRINOTECAN [Suspect]
     Indication: PANCREATIC CARCINOMA
     Dosage: 50 MG/M2 WEEKLY X 4 IV
     Route: 042
     Dates: start: 20060330
  3. IRINOTECAN [Suspect]
     Indication: PANCREATIC CARCINOMA
     Dosage: 50 MG/M2 WEEKLY X 4 IV
     Route: 042
     Dates: start: 20060406
  4. IRINOTECAN [Suspect]
     Indication: PANCREATIC CARCINOMA
     Dosage: 50 MG/M2 WEEKLY X 4 IV
     Route: 042
     Dates: start: 20060413
  5. SENNA [Concomitant]
  6. OXYCODONE HCL [Concomitant]
  7. COLACE [Concomitant]
  8. DILAUDID [Concomitant]
  9. ZETIA [Concomitant]
  10. REGLAN [Concomitant]
  11. SOTALOL HCL [Concomitant]
  12. COMPAZINE [Concomitant]
  13. LASIX [Concomitant]
  14. MEGESTROL [Concomitant]

REACTIONS (6)
  - ABDOMINAL PAIN [None]
  - BLOOD PRESSURE DECREASED [None]
  - DIARRHOEA [None]
  - DIZZINESS [None]
  - HAEMOGLOBIN DECREASED [None]
  - NEUTROPENIA [None]
